FAERS Safety Report 8400379-X (Version None)
Quarter: 2012Q2

REPORT INFORMATION
  Report Type: 
  Country: None (occurrence: None)
  Receive Date: 20120531
  Receipt Date: 20120530
  Transmission Date: 20120825
  Serious: Yes (Hospitalization)
  Sender: FDA-Public Use
  Company Number: US-ACTELION-A-NJ2011-57430

PATIENT

DRUGS (4)
  1. LETAIRIS [Concomitant]
  2. EPOPROSTENOL SODIUM [Suspect]
     Indication: PULMONARY ARTERIAL HYPERTENSION
     Dosage: 6 NG/KG, PER MIN
     Route: 041
     Dates: start: 20100929
  3. ADCIRCA [Concomitant]
  4. COUMADIN [Concomitant]

REACTIONS (4)
  - DEVICE DAMAGE [None]
  - COLD SWEAT [None]
  - CENTRAL VENOUS CATHETER REMOVAL [None]
  - CATHETER SITE HAEMORRHAGE [None]
